FAERS Safety Report 13120585 (Version 9)
Quarter: 2019Q3

REPORT INFORMATION
  Report Type: Spontaneous
  Country: US (occurrence: US)
  Receive Date: 20170117
  Receipt Date: 20190923
  Transmission Date: 20191004
  Serious: Yes (Hospitalization)
  Sender: FDA-Public Use
  Company Number: US-PFIZER INC-2017017925

PATIENT
  Age: 56 Year
  Sex: Female

DRUGS (5)
  1. RELPAX [Suspect]
     Active Substance: ELETRIPTAN HYDROBROMIDE
     Indication: HEADACHE
     Dosage: 40 MG, AS NEEDED (1 AT HEADACHE ONSET, REPEAT IN 2 HOURS IF NEEDED/2 PER 24 HOURS MAXIMUM)
     Route: 048
     Dates: start: 20181210
  2. SKELAXIN [Concomitant]
     Active Substance: METAXALONE
     Dosage: 800 MG, UNK
  3. RELPAX [Suspect]
     Active Substance: ELETRIPTAN HYDROBROMIDE
     Dosage: 40 MG, AS NEEDED (REPEAT IN 2HOURS IF NEEDED/4 PER 24 HOURS MAXIMUM)
     Route: 048
  4. RELPAX [Suspect]
     Active Substance: ELETRIPTAN HYDROBROMIDE
     Indication: MIGRAINE
     Dosage: 40 MG, UNK (^6 BY 2^)
  5. PREMARIN [Concomitant]
     Active Substance: ESTROGENS, CONJUGATED
     Dosage: UNK

REACTIONS (8)
  - Fall [Unknown]
  - Migraine [Unknown]
  - Concussion [Unknown]
  - Back pain [Unknown]
  - Malaise [Unknown]
  - Animal scratch [Unknown]
  - Pain [Unknown]
  - Nausea [Unknown]
